FAERS Safety Report 5188147-6 (Version None)
Quarter: 2006Q4

REPORT INFORMATION
  Report Type: 
  Country: None (occurrence: None)
  Receive Date: 20061221
  Receipt Date: 20060227
  Transmission Date: 20070319
  Serious: Yes (Disabling)
  Sender: FDA-Public Use
  Company Number: DZ-SANOFI-SYNTHELABO-A01200601579

PATIENT
  Age: 60 Year
  Sex: Male

DRUGS (2)
  1. PIPRAM [Concomitant]
     Indication: URINARY TRACT INFECTION
     Route: 048
     Dates: start: 20060201
  2. XATRAL [Suspect]
     Indication: BENIGN PROSTATIC HYPERPLASIA
     Route: 048
     Dates: start: 20060201, end: 20060205

REACTIONS (1)
  - MYOCLONUS [None]
